FAERS Safety Report 11792712 (Version 1)
Quarter: 2015Q4

REPORT INFORMATION
  Report Type: Spontaneous
  Country: IT (occurrence: None)
  Receive Date: 20151130
  Receipt Date: 20151130
  Transmission Date: 20160305
  Serious: Yes (Other)
  Sender: FDA-Public Use
  Company Number: 2015RR-106564

PATIENT
  Age: 54 Year
  Sex: Female

DRUGS (3)
  1. AMOXICILLIN/CLAVULANIC ACID(AMOXICILLIN, CLAVULANIC ACID) UNKNOWN [Suspect]
     Active Substance: AMOXICILLIN\CLAVULANIC ACID
     Indication: TOOTH EXTRACTION
     Route: 048
     Dates: start: 20151007, end: 20151010
  2. DIBASE (CHOLECALCIFEROL) [Concomitant]
  3. EUTIROX (LEVOTHYROXINE) [Concomitant]
     Active Substance: LEVOTHYROXINE SODIUM

REACTIONS (3)
  - Abdominal pain upper [None]
  - Diarrhoea [None]
  - Pancreatitis [None]

NARRATIVE: CASE EVENT DATE: 20151010
